FAERS Safety Report 8903505 (Version 1)
Quarter: 2012Q4

REPORT INFORMATION
  Report Type: 
  Country: US (occurrence: US)
  Receive Date: 20121112
  Receipt Date: 20121112
  Transmission Date: 20130627
  Serious: Yes (Other)
  Sender: FDA-Public Use
  Company Number: US-ASTRAZENECA-2012SE83231

PATIENT
  Age: 88 Year
  Sex: Female
  Weight: 55.3 kg

DRUGS (9)
  1. BRILINTA [Suspect]
     Indication: MYOCARDIAL INFARCTION
     Route: 048
     Dates: start: 201203
  2. LISINOPRIL [Suspect]
     Indication: HYPERTENSION
     Route: 048
     Dates: start: 201203, end: 201203
  3. SIMVASTATIN [Concomitant]
     Indication: BLOOD CHOLESTEROL INCREASED
     Route: 048
  4. ASPIRIN [Concomitant]
     Indication: HYPERTENSION
     Route: 048
  5. FLUDROCORTIZONE [Concomitant]
     Indication: ANXIETY
     Dosage: 0.1 as required
     Route: 048
  6. NOVOLOG [Concomitant]
     Indication: DIABETES MELLITUS
     Route: 058
  7. LANTUS INSULIN [Concomitant]
     Indication: DIABETES MELLITUS
     Route: 058
  8. LEVOTHYROXINE [Concomitant]
     Indication: HYPOTHYROIDISM
     Route: 048
  9. QUININE SULFATE [Concomitant]
     Indication: MUSCLE SPASMS
     Route: 048

REACTIONS (6)
  - Basal cell carcinoma [Unknown]
  - Melanocytic naevus [Unknown]
  - Myalgia [Not Recovered/Not Resolved]
  - Back pain [Not Recovered/Not Resolved]
  - Arthralgia [Not Recovered/Not Resolved]
  - Hypotension [Unknown]
